FAERS Safety Report 8319871-1 (Version None)
Quarter: 2012Q2

REPORT INFORMATION
  Report Type: 
  Country: None (occurrence: None)
  Receive Date: 20120427
  Receipt Date: 20120420
  Transmission Date: 20120825
  Serious: Yes (Hospitalization, Other)
  Sender: FDA-Public Use
  Company Number: DE-ABBOTT-12P-062-0898421-00

PATIENT
  Age: 55 Year
  Sex: Female
  Weight: 43 kg

DRUGS (7)
  1. HUMIRA [Suspect]
     Route: 058
  2. MESALAMINE [Concomitant]
     Indication: PRODUCT USED FOR UNKNOWN INDICATION
     Dates: start: 20111001
  3. HUMIRA [Suspect]
     Indication: CROHN'S DISEASE
     Route: 058
     Dates: start: 20081028, end: 20110601
  4. DIPYRONE TAB [Concomitant]
     Indication: PRODUCT USED FOR UNKNOWN INDICATION
     Dates: start: 20111209, end: 20120118
  5. HUMIRA [Suspect]
     Route: 058
  6. BUDENOFALK REKTALSCHAUM [Concomitant]
     Indication: PRODUCT USED FOR UNKNOWN INDICATION
     Dosage: ONE HUB PER DAY
     Dates: start: 20110901, end: 20120118
  7. ENOXAPARIN SODIUM [Concomitant]
     Indication: PRODUCT USED FOR UNKNOWN INDICATION
     Dates: start: 20120109, end: 20120118

REACTIONS (4)
  - ILEUS [None]
  - INTESTINAL STENOSIS [None]
  - COLOSTOMY CLOSURE [None]
  - INTESTINAL ANASTOMOSIS [None]
